FAERS Safety Report 7828554-3 (Version None)
Quarter: 2011Q4

REPORT INFORMATION
  Report Type: 
  Country: None (occurrence: None)
  Receive Date: 20111020
  Receipt Date: 20111020
  Transmission Date: 20120403
  Serious: Yes (Life-Threatening, Hospitalization)
  Sender: FDA-Public Use
  Company Number: None

PATIENT
  Age: 63 Year
  Sex: Male
  Weight: 114.3 kg

DRUGS (13)
  1. KLOR-CON [Concomitant]
  2. TRANDALOPRIL [Concomitant]
  3. LYRICA [Concomitant]
  4. SLOW-MAG [Concomitant]
  5. LOTRISONE [Concomitant]
  6. VERAMYST [Concomitant]
  7. LANTUS [Concomitant]
  8. NOVOLOG [Concomitant]
  9. PRADAXA [Suspect]
     Indication: ATRIAL FIBRILLATION
     Dosage: 150 MG
     Route: 048
     Dates: start: 20110501, end: 20111017
  10. LASIX [Concomitant]
  11. CARVEDILOL [Concomitant]
  12. GLYCOLAX [Concomitant]
  13. CRESTOR [Concomitant]

REACTIONS (2)
  - CONTUSION [None]
  - CEREBRAL HAEMORRHAGE [None]
